FAERS Safety Report 8035807-5 (Version None)
Quarter: 2012Q1

REPORT INFORMATION
  Report Type: 
  Country: None (occurrence: None)
  Receive Date: 20120111
  Receipt Date: 20120105
  Transmission Date: 20120608
  Serious: Yes (Hospitalization)
  Sender: FDA-Public Use
  Company Number: CA-BRISTOL-MYERS SQUIBB COMPANY-16333338

PATIENT
  Age: 53 Year
  Sex: Female

DRUGS (4)
  1. HALDOL [Concomitant]
  2. IPILIMUMAB [Suspect]
     Indication: MALIGNANT MELANOMA
     Route: 042
     Dates: start: 20111213
  3. METHADONE HCL [Concomitant]
  4. SUFENTANIL CITRATE [Concomitant]

REACTIONS (2)
  - CONSTIPATION [None]
  - PAIN IN EXTREMITY [None]
